FAERS Safety Report 7910449-8 (Version None)
Quarter: 2011Q4

REPORT INFORMATION
  Report Type: 
  Country: None (occurrence: None)
  Receive Date: 20111111
  Receipt Date: 20111102
  Transmission Date: 20120403
  Serious: Yes (Other)
  Sender: FDA-Public Use
  Company Number: AT-ASTRAZENECA-2011SE66247

PATIENT
  Age: 40 Year
  Sex: Female

DRUGS (6)
  1. SOMNUBENE [Concomitant]
     Route: 048
     Dates: start: 20111004
  2. CRESTOR [Suspect]
     Indication: HYPERLIPIDAEMIA
     Route: 048
  3. GEMFIBROZIL [Interacting]
     Indication: MANIA
     Dosage: LONG TERM ADMINISTRATION
     Route: 048
  4. SYCREST [Interacting]
     Indication: MANIA
     Route: 048
     Dates: start: 20110916, end: 20111012
  5. OXAZEPAM [Concomitant]
     Indication: TENSION
     Dosage: 100-200 MG
     Route: 048
  6. SEROQUEL XR [Concomitant]
     Indication: MANIA
     Route: 048
     Dates: start: 20111010

REACTIONS (4)
  - DRUG INTERACTION [None]
  - BLOOD CREATINE PHOSPHOKINASE INCREASED [None]
  - RHABDOMYOMA [None]
  - MYOGLOBIN BLOOD INCREASED [None]
